FAERS Safety Report 17285497 (Version 1)
Quarter: 2020Q1

REPORT INFORMATION
  Report Type: Spontaneous
  Country: US (occurrence: US)
  Receive Date: 20200117
  Receipt Date: 20200117
  Transmission Date: 20200409
  Serious: No
  Sender: FDA-Public Use
  Company Number: NVSC2020US011767

PATIENT
  Sex: Male

DRUGS (1)
  1. VOTRIENT [Suspect]
     Active Substance: PAZOPANIB HYDROCHLORIDE
     Indication: ADRENAL GLAND CANCER
     Dosage: 600 MG, QD
     Route: 048
     Dates: start: 201909

REACTIONS (3)
  - Post-traumatic stress disorder [Unknown]
  - Product use in unapproved indication [Unknown]
  - Nausea [Unknown]
